FAERS Safety Report 19599084 (Version 1)
Quarter: 2021Q3

REPORT INFORMATION
  Report Type: Spontaneous
  Country: US (occurrence: US)
  Receive Date: 20210723
  Receipt Date: 20210723
  Transmission Date: 20211014
  Serious: No
  Sender: FDA-Public Use
  Company Number: None

PATIENT
  Age: 40 Year
  Sex: Female
  Weight: 83.25 kg

DRUGS (2)
  1. MULTIVITAMIN [Concomitant]
     Active Substance: VITAMINS
  2. SYNTHROID [Suspect]
     Active Substance: LEVOTHYROXINE SODIUM
     Indication: THYROIDECTOMY
     Dosage: ?          QUANTITY:90 TABLET(S);?
     Route: 048
     Dates: start: 20210630, end: 20210720

REACTIONS (7)
  - Middle insomnia [None]
  - Chest pain [None]
  - Insomnia [None]
  - Heart rate irregular [None]
  - Product substitution issue [None]
  - Somnolence [None]
  - Neck pain [None]

NARRATIVE: CASE EVENT DATE: 20210720
